FAERS Safety Report 10240647 (Version 2)
Quarter: 2014Q2

REPORT INFORMATION
  Report Type: Spontaneous
  Country: SE (occurrence: SE)
  Receive Date: 20140617
  Receipt Date: 20140617
  Transmission Date: 20141212
  Serious: Yes (Hospitalization)
  Sender: FDA-Public Use
  Company Number: SE-JNJFOC-20140303810

PATIENT
  Age: 46 Year
  Sex: Female

DRUGS (4)
  1. XARELTO [Suspect]
     Indication: PULMONARY EMBOLISM
     Route: 048
     Dates: start: 20140110, end: 20140203
  2. OCTOSTIM [Suspect]
     Indication: POLYMENORRHAGIA
     Dosage: 150 G
     Route: 045
     Dates: start: 20140126, end: 201404
  3. FLUOXETINE [Concomitant]
     Route: 065
  4. CYKLOKAPRON [Concomitant]
     Indication: POLYMENORRHAGIA
     Route: 065

REACTIONS (3)
  - Vaginal haemorrhage [Recovered/Resolved]
  - Anaemia [Recovered/Resolved]
  - Hyponatraemia [Recovered/Resolved]
